FAERS Safety Report 4489891-6 (Version None)
Quarter: 2004Q4

REPORT INFORMATION
  Report Type: 
  Country: None (occurrence: None)
  Receive Date: 20041026
  Receipt Date: 20041012
  Transmission Date: 20050328
  Serious: Yes (Hospitalization)
  Sender: FDA-Public Use
  Company Number: 230021M04CHE

PATIENT
  Sex: Female

DRUGS (3)
  1. REBIF [Suspect]
     Indication: MULTIPLE SCLEROSIS
     Dosage: 44 MCG, 1 IN 1 WEEKS, SUBCUTANEOUS : 22 MG, 2 IN 1 WEEKS, SUBCUTANEOUS
     Route: 058
     Dates: start: 20020101
  2. REBIF [Suspect]
     Indication: MULTIPLE SCLEROSIS
     Dosage: 44 MCG, 1 IN 1 WEEKS, SUBCUTANEOUS : 22 MG, 2 IN 1 WEEKS, SUBCUTANEOUS
     Route: 058
     Dates: start: 20020101
  3. MODAFINIL [Concomitant]

REACTIONS (2)
  - CEREBRAL HAEMORRHAGE [None]
  - DRUG TOLERANCE DECREASED [None]
